FAERS Safety Report 15326602 (Version 10)
Quarter: 2018Q4

REPORT INFORMATION
  Report Type: Report from Study
  Country: None (occurrence: JP)
  Receive Date: 20180828
  Receipt Date: 20181219
  Transmission Date: 20190204
  Serious: Yes (Other)
  Sender: FDA-Public Use
  Company Number: JP-ABBVIE-18S-087-2464004-00

PATIENT
  Age: 75 Year
  Sex: Male

DRUGS (4)
  1. DUODOPA [Suspect]
     Active Substance: CARBIDOPA\LEVODOPA
     Route: 050
     Dates: start: 2018
  2. DUODOPA [Suspect]
     Active Substance: CARBIDOPA\LEVODOPA
     Dosage: 1.5 - 2 HOURS
     Route: 050
     Dates: start: 20180920, end: 20180920
  3. DUODOPA [Suspect]
     Active Substance: CARBIDOPA\LEVODOPA
     Indication: PARKINSON^S DISEASE
     Route: 050
     Dates: start: 20180602
  4. DUODOPA [Suspect]
     Active Substance: CARBIDOPA\LEVODOPA
     Dosage: TUBE WAS CONNECTED TO THE CORRECT PLACE
     Route: 050
     Dates: start: 20180920

REACTIONS (10)
  - On and off phenomenon [Unknown]
  - Stoma site discharge [Recovering/Resolving]
  - Stoma site extravasation [Unknown]
  - Incorrect route of product administration [Recovered/Resolved]
  - Hypoaesthesia [Unknown]
  - Gastric cancer [Unknown]
  - Stoma site haemorrhage [Unknown]
  - Therapeutic response changed [Unknown]
  - Hypokinesia [Unknown]
  - Musculoskeletal stiffness [Unknown]

NARRATIVE: CASE EVENT DATE: 2018
